FAERS Safety Report 8732273 (Version 2)
Quarter: 2012Q4

REPORT INFORMATION
  Report Type: Report from Study
  Country: US (occurrence: US)
  Receive Date: 20120820
  Receipt Date: 20120927
  Transmission Date: 20130627
  Serious: Yes (Hospitalization)
  Sender: FDA-Public Use
  Company Number: US-EISAI INC-E7389-01816-CLI-US

PATIENT
  Age: 70 Year
  Sex: Female
  Weight: 90 kg

DRUGS (1)
  1. E7389 (BOLD) [Suspect]
     Indication: BREAST CANCER
     Route: 041
     Dates: start: 20110906, end: 20111129

REACTIONS (4)
  - Gastroenteritis [Recovered/Resolved]
  - Decreased appetite [None]
  - Neutropenia [None]
  - Electrolyte imbalance [None]
